FAERS Safety Report 15744054 (Version 2)
Quarter: 2019Q1

REPORT INFORMATION
  Report Type: Report from Study
  Country: None (occurrence: US)
  Receive Date: 20181220
  Receipt Date: 20190121
  Transmission Date: 20190417
  Serious: Yes (Hospitalization)
  Sender: FDA-Public Use
  Company Number: US-ABBVIE-18K-163-2595867-00

PATIENT
  Sex: Male

DRUGS (2)
  1. HUMIRA [Suspect]
     Active Substance: ADALIMUMAB
     Indication: UVEITIS
     Route: 058
     Dates: start: 2018
  2. HUMIRA [Suspect]
     Active Substance: ADALIMUMAB
     Indication: UVEITIS
     Route: 058

REACTIONS (7)
  - Asthma [Unknown]
  - Seizure [Unknown]
  - Skin ulcer [Unknown]
  - Eye inflammation [Unknown]
  - Hyperkeratosis [Unknown]
  - Immunodeficiency [Unknown]
  - Aneurysm [Unknown]
